FAERS Safety Report 24965501 (Version 1)
Quarter: 2025Q1

REPORT INFORMATION
  Report Type: Report from Study
  Country: CZ (occurrence: CZ)
  Receive Date: 20250213
  Receipt Date: 20250213
  Transmission Date: 20250408
  Serious: Yes (Other)
  Sender: ROCHE
  Company Number: CZ-ROCHE-10000017134

PATIENT
  Age: 73 Year
  Sex: Female

DRUGS (8)
  1. GLOFITAMAB [Suspect]
     Active Substance: GLOFITAMAB
     Indication: Diffuse large B-cell lymphoma
     Route: 065
     Dates: start: 20240503
  2. GLOFITAMAB [Suspect]
     Active Substance: GLOFITAMAB
     Route: 065
     Dates: start: 20240527
  3. GLOFITAMAB [Suspect]
     Active Substance: GLOFITAMAB
     Route: 065
     Dates: start: 20240417
  4. OBINUTUZUMAB [Suspect]
     Active Substance: OBINUTUZUMAB
     Indication: Product used for unknown indication
     Route: 065
     Dates: start: 20240410
  5. BISEPTOL [Concomitant]
     Active Substance: SULFAMETHOXAZOLE\TRIMETHOPRIM
     Route: 048
  6. AMLODIPINE BESYLATE\INDAPAMIDE\PERINDOPRIL ARGININE [Concomitant]
     Active Substance: AMLODIPINE BESYLATE\INDAPAMIDE\PERINDOPRIL ARGININE
     Dosage: 5/1.25 MG
     Route: 048
  7. POTASSIUM CHLORIDE [Concomitant]
     Active Substance: POTASSIUM CHLORIDE
     Indication: Pain
     Route: 048
  8. novalgin [Concomitant]
     Indication: Pain
     Route: 048

REACTIONS (5)
  - Urinary tract infection [Not Recovered/Not Resolved]
  - Musculoskeletal pain [Unknown]
  - Neutropenia [Unknown]
  - Decreased appetite [Unknown]
  - Fatigue [Unknown]

NARRATIVE: CASE EVENT DATE: 20240607
